FAERS Safety Report 15703992 (Version 1)
Quarter: 2018Q4

REPORT INFORMATION
  Report Type: Spontaneous
  Country: US (occurrence: US)
  Receive Date: 20181127
  Receipt Date: 20181127
  Transmission Date: 20190205
  Serious: Yes (Hospitalization)
  Sender: FDA-Public Use
  Company Number: None

PATIENT
  Age: 48 Year
  Sex: Female
  Weight: 66.6 kg

DRUGS (1)
  1. ASPIRIN. [Suspect]
     Active Substance: ASPIRIN
     Dates: end: 20181020

REACTIONS (6)
  - Post procedural infection [None]
  - Medical device removal [None]
  - Culture positive [None]
  - Staphylococcal infection [None]
  - Mastitis [None]
  - Therapy non-responder [None]

NARRATIVE: CASE EVENT DATE: 20181020
